FAERS Safety Report 4741918-X (Version None)
Quarter: 2005Q3

REPORT INFORMATION
  Report Type: 
  Country: None (occurrence: None)
  Receive Date: 20050801
  Receipt Date: 20050616
  Transmission Date: 20060218
  Serious: No
  Sender: FDA-Public Use
  Company Number: 2005PV000061

PATIENT
  Age: 34 Year
  Sex: Female
  Weight: 97.977 kg

DRUGS (5)
  1. BYETTA [Suspect]
     Indication: DIABETES MELLITUS NON-INSULIN-DEPENDENT
     Dosage: 5 UG;BID;SC
     Route: 058
     Dates: start: 20050604
  2. GLUCOPHAGE [Concomitant]
  3. NUTROPIN [Concomitant]
  4. DOSTINEX [Concomitant]
  5. SYNTHROID [Concomitant]

REACTIONS (1)
  - WEIGHT DECREASED [None]
